FAERS Safety Report 17812525 (Version 1)
Quarter: 2020Q2

REPORT INFORMATION
  Report Type: Report from Study
  Country: US (occurrence: US)
  Receive Date: 20200521
  Receipt Date: 20200521
  Transmission Date: 20200714
  Serious: Yes (Hospitalization, Other)
  Sender: FDA-Public Use
  Company Number: US-SHIRE-US202016733

PATIENT
  Age: 54 Year
  Sex: Male

DRUGS (1)
  1. GATTEX [Suspect]
     Active Substance: TEDUGLUTIDE\WATER
     Indication: SHORT-BOWEL SYNDROME
     Dosage: 0.37 MILLILITER, 1X/DAY:QD
     Route: 058
     Dates: start: 20200424

REACTIONS (1)
  - Device related sepsis [Unknown]

NARRATIVE: CASE EVENT DATE: 20200512
